FAERS Safety Report 9520869 (Version 1)
Quarter: 2013Q3

REPORT INFORMATION
  Report Type: Spontaneous
  Country: US (occurrence: None)
  Receive Date: 20130911
  Receipt Date: 20130911
  Transmission Date: 20140515
  Serious: Yes (Death, Hospitalization)
  Sender: FDA-Public Use
  Company Number: AUR-APL-2013-07587

PATIENT
  Age: 53 Year
  Sex: Male
  Weight: 123.8 kg

DRUGS (20)
  1. METFORMIN (METFORMIN) [Suspect]
     Indication: DIABETES MELLITUS
     Dosage: 1000 MG (500 MG, 2 IN 1 D), ORAL
     Route: 048
     Dates: start: 20110622
  2. LIPITOR (ATORVASTATIN CALCIUM) [Suspect]
     Indication: BLOOD CHOLESTEROL INCREASED
     Dosage: 20 MG (20 MG, 1 IN 1 D) ORAL
     Route: 048
     Dates: start: 20080303
  3. ZOLOFT (SERTRALINE HYDROCHLORIDE) [Suspect]
     Indication: ANXIETY
     Dosage: (50 MG, 1 D), ORAL
     Route: 048
     Dates: start: 20111215, end: 20120503
  4. TAXOTERE (DOCETAXEL) [Suspect]
     Indication: PRODUCT USED FOR UNKNOWN INDICATION
     Route: 042
  5. NEULASTA [Suspect]
     Indication: WHITE BLOOD CELL COUNT
  6. DIOVAN (VALSARTAN) [Concomitant]
  7. TOPROL XL (METOPROLOL SUCCINATE) (100 MILLIGRAM) (METOPROLOL SUCCINATE) [Concomitant]
  8. ASPIRIN (ACETYLSALICYLIC ACID) [Concomitant]
  9. COREG (CARVEDILOL) [Concomitant]
  10. DIOVAN HCT (CO-DIOVAN) [Concomitant]
  11. PEPCID (FAMOTIDINE) [Concomitant]
  12. DEXAMETHASONE SODIUM PHOSPHATE (DEXAMETHASONE SODIUM PHOSPHATE) [Concomitant]
  13. ONDANSETRON HYDROCHLORIDE (ONDANSETRON HYDROCHLORIDE) [Concomitant]
  14. BENADRYL (DIPHENHYDRAMINE HYDROCHLORIDE) [Concomitant]
  15. CALTRATE (CALCIUM CARBONATE W/VITAMIN D NOS) [Concomitant]
  16. SERTRALINE HYDROCHLORIDE (SERTRALINE HYDROCHLORIDE) [Concomitant]
  17. ATIVAN (LORAZEPAM) [Concomitant]
  18. ZOFRAN (ONDANSETRON) [Concomitant]
  19. PROCHLORPERAZINE MALEATE (PROCHLORPERAZINE MALEATE) [Concomitant]
  20. DEXAMETHASONE (DEXAMETHASONE) [Concomitant]

REACTIONS (10)
  - Prostate cancer [None]
  - Retroperitoneal lymphadenopathy [None]
  - Metastases to liver [None]
  - Fatigue [None]
  - Decreased appetite [None]
  - Dysgeusia [None]
  - Weight decreased [None]
  - Nausea [None]
  - Dizziness [None]
  - Epigastric discomfort [None]
